FAERS Safety Report 19185309 (Version 1)
Quarter: 2021Q2

REPORT INFORMATION
  Report Type: Spontaneous
  Country: PT (occurrence: PT)
  Receive Date: 20210427
  Receipt Date: 20210427
  Transmission Date: 20210717
  Serious: Yes (Other)
  Sender: FDA-Public Use
  Company Number: PT-PFIZER INC-2021429750

PATIENT
  Age: 84 Year
  Weight: 80 kg

DRUGS (9)
  1. SERTRALINE [Concomitant]
     Active Substance: SERTRALINE HYDROCHLORIDE
     Route: 048
  2. SPIRONOLACTONE. [Concomitant]
     Active Substance: SPIRONOLACTONE
     Route: 048
  3. NEBILET HCT [Concomitant]
     Route: 048
  4. BETAHISTINE [Concomitant]
     Active Substance: BETAHISTINE
     Route: 048
  5. PREGABALIN. [Suspect]
     Active Substance: PREGABALIN
     Indication: PAIN
     Dosage: 50 MG, 1X/DAY (1 ? 12\12H)
     Route: 048
     Dates: start: 20210319, end: 20210325
  6. ADT [Concomitant]
     Active Substance: AMITRIPTYLINE HYDROCHLORIDE
     Route: 048
  7. PRADAXA [Concomitant]
     Active Substance: DABIGATRAN ETEXILATE MESYLATE
     Route: 048
  8. METAMIZOLE MAGNESIUM [Suspect]
     Active Substance: METAMIZOLE MAGNESIUM
     Indication: PAIN
     Dosage: 1725 MG, DAILY (1 ? 8\8H)
     Route: 048
     Dates: start: 20210319, end: 20210325
  9. LANOXIN MD [Concomitant]
     Active Substance: DIGOXIN
     Route: 048

REACTIONS (1)
  - Erythema [Recovering/Resolving]

NARRATIVE: CASE EVENT DATE: 20210319
